FAERS Safety Report 15261319 (Version 1)
Quarter: 2018Q3

REPORT INFORMATION
  Report Type: Spontaneous
  Country: JP (occurrence: JP)
  Receive Date: 20180809
  Receipt Date: 20180809
  Transmission Date: 20181010
  Serious: Yes (Hospitalization)
  Sender: FDA-Public Use
  Company Number: JP-ALLERGAN-S04-JPN-05853-01

PATIENT
  Age: 62 Year
  Sex: Female

DRUGS (8)
  1. SELECTOL [Concomitant]
     Active Substance: CELIPROLOL
     Indication: TACHYCARDIA
     Dosage: 100 MG, UNK
     Dates: start: 20011109, end: 20020126
  2. DORAL [Suspect]
     Active Substance: QUAZEPAM
     Indication: DEPRESSION
     Dosage: 15 MG, QD
     Route: 048
     Dates: start: 20020125, end: 20020126
  3. GASTER [Concomitant]
     Active Substance: FAMOTIDINE
     Indication: GASTRITIS
     Dosage: 1 G, UNK
     Dates: start: 19980117, end: 20020126
  4. BLOPRESS [Concomitant]
     Active Substance: CANDESARTAN CILEXETIL
     Indication: HYPERTENSION
     Dosage: 8 MG, UNK
     Dates: start: 19991112, end: 20020126
  5. WYPAX [Suspect]
     Active Substance: LORAZEPAM
     Indication: DEPRESSION
     Dosage: 1 MG, QD
     Route: 048
     Dates: start: 20020125, end: 20020126
  6. ULCERLMIN [Concomitant]
     Active Substance: SUCRALFATE
     Indication: GASTRITIS
     Dosage: 2 ML, UNK
     Dates: start: 20011116, end: 20020126
  7. AMLODIN [Concomitant]
     Active Substance: AMLODIPINE BESYLATE
     Indication: HYPERTENSION
     Dosage: 5 MG, UNK
     Dates: start: 20000630, end: 20020126
  8. MILNACIPRAN ? BP [Suspect]
     Active Substance: MILNACIPRAN
     Indication: PRODUCT USED FOR UNKNOWN INDICATION
     Dosage: 50 MG, QD
     Route: 048
     Dates: start: 20020125, end: 20020127

REACTIONS (4)
  - Pneumonia [Not Recovered/Not Resolved]
  - Vomiting [Not Recovered/Not Resolved]
  - Altered state of consciousness [Not Recovered/Not Resolved]
  - Muscle necrosis [Not Recovered/Not Resolved]

NARRATIVE: CASE EVENT DATE: 20020127
